FAERS Safety Report 11857358 (Version 2)
Quarter: 2015Q4

REPORT INFORMATION
  Report Type: Spontaneous
  Country: IN (occurrence: IN)
  Receive Date: 20151221
  Receipt Date: 20151221
  Transmission Date: 20160305
  Serious: Yes (Life-Threatening, Hospitalization)
  Sender: FDA-Public Use
  Company Number: IN-ACTAVIS-2015-16503

PATIENT
  Age: 43 Year
  Sex: Male

DRUGS (2)
  1. TRAMADOL. [Interacting]
     Active Substance: TRAMADOL
     Indication: ANAESTHESIA
     Dosage: 1.25 MG/KG, IN DILUTION OF 1 ML = 20 MG
     Route: 042
  2. FENTANYL (UNKNOWN) [Suspect]
     Active Substance: FENTANYL
     Indication: ANAESTHESIA
     Dosage: 0.83 ?G/KG, IN DILUTION OF 1 ML = 50 ?G
     Route: 042

REACTIONS (3)
  - Cardiac arrest [Recovered/Resolved]
  - Drug interaction [Recovered/Resolved]
  - Serotonin syndrome [Recovered/Resolved]
